FAERS Safety Report 9293116 (Version 1)
Quarter: 2013Q2

REPORT INFORMATION
  Report Type: Spontaneous
  Country: US (occurrence: None)
  Receive Date: 20130514
  Receipt Date: 20130514
  Transmission Date: 20140414
  Serious: Yes (Other)
  Sender: FDA-Public Use
  Company Number: 2013SA047078

PATIENT
  Age: 72 Year
  Sex: Female

DRUGS (1)
  1. ACT [Suspect]
     Dates: start: 20130502, end: 20130504

REACTIONS (1)
  - Atrial fibrillation [None]
